FAERS Safety Report 13272525 (Version 1)
Quarter: 2017Q1

REPORT INFORMATION
  Report Type: Spontaneous
  Country: JP (occurrence: JP)
  Receive Date: 20170227
  Receipt Date: 20170227
  Transmission Date: 20170428
  Serious: Yes (Other)
  Sender: FDA-Public Use
  Company Number: JP-CORDEN PHARMA LATINA S.P.A.-JP-2017COR000028

PATIENT
  Age: 19 Year
  Sex: Female

DRUGS (16)
  1. IFOSFAMIDE. [Concomitant]
     Active Substance: IFOSFAMIDE
     Dosage: 900 MG/M2, QD ON DAYS 1-5, X6 COURSES
  2. ETOPOSIDE. [Suspect]
     Active Substance: ETOPOSIDE
     Dosage: 75 MG, QD FOR 21 CONSECUTIVE DAYS, EVERY 5 WEEKS, X 2 COURSES
     Route: 048
  3. ETOPOSIDE. [Suspect]
     Active Substance: ETOPOSIDE
     Indication: INTRACRANIAL GERM CELL TUMOUR
     Dosage: 150 MG/M2, QD ON DAYS 1?3, X 1 COURSE
  4. CARBOPLATIN. [Concomitant]
     Active Substance: CARBOPLATIN
     Dosage: 450 MG/M2, QD ON DAY 1, X 1 COURSE
  5. CISPLATIN. [Concomitant]
     Active Substance: CISPLATIN
     Dosage: 20 MG/M2, QD ON DAYS 1-5, X6 COURSES
  6. ETOPOSIDE. [Suspect]
     Active Substance: ETOPOSIDE
     Dosage: 21 MG, QD FOR 21 CONSECUTIVE DAYS, EVERY 5 WEEKS
     Route: 048
  7. CARBOPLATIN. [Concomitant]
     Active Substance: CARBOPLATIN
     Dosage: 450 MG/M2, QD ON DAY 1, X 1 COURSE
  8. IFOSFAMIDE. [Concomitant]
     Active Substance: IFOSFAMIDE
     Indication: INTRACRANIAL GERM CELL TUMOUR
     Dosage: 900 MG/M2, QD ON DAYS 1-5
  9. ETOPOSIDE. [Suspect]
     Active Substance: ETOPOSIDE
     Dosage: 150 MG/M2, QD ON DAYS 1?3, X 1 COURSE
  10. ETOPOSIDE. [Suspect]
     Active Substance: ETOPOSIDE
     Dosage: 50 MG, QD FOR 21 CONSECUTIVE DAYS, EVERY 5 WEEKS, X 8 COURSES
     Route: 048
  11. CARBOPLATIN. [Concomitant]
     Active Substance: CARBOPLATIN
     Dosage: 450 MG/M2, QD ON DAY 1, X 1 COURSE
  12. CISPLATIN. [Concomitant]
     Active Substance: CISPLATIN
     Indication: INTRACRANIAL GERM CELL TUMOUR
     Dosage: 20 MG/M2, QD ON DAYS 1-5
  13. ETOPOSIDE. [Suspect]
     Active Substance: ETOPOSIDE
     Dosage: 60 MG/M2, QD ON DAYS 1-5, X 6 COURSES
     Route: 048
  14. ETOPOSIDE. [Suspect]
     Active Substance: ETOPOSIDE
     Dosage: 150 MG/M2, QD ON DAYS 1?3, X 1 COURSES
     Route: 048
  15. CARBOPLATIN. [Concomitant]
     Active Substance: CARBOPLATIN
     Indication: INTRACRANIAL GERM CELL TUMOUR
     Dosage: 450 MG/M2, QD ON DAY 1, X 1 COURSE
  16. ETOPOSIDE. [Suspect]
     Active Substance: ETOPOSIDE
     Dosage: 60 MG/M2, QD ON DAYS 1-5

REACTIONS (4)
  - Bone marrow failure [Unknown]
  - Renal impairment [Unknown]
  - Deafness neurosensory [Unknown]
  - Anaemia [Unknown]
